FAERS Safety Report 14093458 (Version 1)
Quarter: 2017Q4

REPORT INFORMATION
  Report Type: Spontaneous
  Country: US (occurrence: US)
  Receive Date: 20171016
  Receipt Date: 20171016
  Transmission Date: 20180321
  Serious: Yes (Other)
  Sender: FDA-Public Use
  Company Number: US-PFIZER INC-2017439732

PATIENT
  Age: 38 Year
  Sex: Female

DRUGS (15)
  1. ESTRIOL [Suspect]
     Active Substance: ESTRIOL
     Dosage: 2 MG, UNK
  2. OMEPRAZOLE. [Concomitant]
     Active Substance: OMEPRAZOLE
     Dosage: 20 MG, DAILY
     Route: 048
  3. VITAMIN E [Concomitant]
     Active Substance: .ALPHA.-TOCOPHEROL
     Dosage: UNK
  4. ESTROGEN [Suspect]
     Active Substance: ESTROGENS
     Indication: HYSTERECTOMY
     Dosage: UNK
  5. ESTRADIOL. [Suspect]
     Active Substance: ESTRADIOL
     Dosage: 0.5 MG, UNK
  6. ESTROGEL [Suspect]
     Active Substance: ESTRADIOL
     Dosage: UNK (RUB ON YOUR ARM)
  7. VITAMIN C [Concomitant]
     Active Substance: ASCORBIC ACID
     Dosage: UNK
  8. ESTRACE [Suspect]
     Active Substance: ESTRADIOL
     Indication: ATROPHIC VULVOVAGINITIS
     Dosage: UNK
  9. LORAZEPAM. [Concomitant]
     Active Substance: LORAZEPAM
     Dosage: 0.5 MG, DAILY
     Route: 048
  10. ESTRADIOL. [Suspect]
     Active Substance: ESTRADIOL
     Dosage: 0.1 MG, UNK
  11. ESTRADIOL. [Suspect]
     Active Substance: ESTRADIOL
     Dosage: 2 MG, UNK
  12. IRON [Concomitant]
     Active Substance: IRON
     Dosage: UNK
  13. MINIVELLE [Suspect]
     Active Substance: ESTRADIOL
     Indication: HYSTERECTOMY
     Dosage: 0.05 MG, UNK
     Route: 062
  14. FISH OIL [Concomitant]
     Active Substance: FISH OIL
     Dosage: UNK
  15. VITAMIN D [Concomitant]
     Active Substance: CHOLECALCIFEROL
     Dosage: UNK

REACTIONS (13)
  - Hypoaesthesia [Unknown]
  - Nightmare [Unknown]
  - Chest discomfort [Unknown]
  - Fluid retention [Unknown]
  - Myocardial infarction [Unknown]
  - Paraesthesia [Unknown]
  - Swelling face [Unknown]
  - Facial pain [Unknown]
  - Blood test abnormal [Unknown]
  - Sinusitis [Unknown]
  - Ocular discomfort [Unknown]
  - Fatigue [Unknown]
  - Nasal discomfort [Unknown]
